FAERS Safety Report 8855031 (Version 1)
Quarter: 2012Q4

REPORT INFORMATION
  Report Type: 
  Country: DE (occurrence: DE)
  Receive Date: 20121023
  Receipt Date: 20121023
  Transmission Date: 20130627
  Serious: Yes (Other)
  Sender: FDA-Public Use
  Company Number: DE-MYLANLABS-2012S1021064

PATIENT
  Age: 74 Year
  Sex: Female
  Weight: 72 kg

DRUGS (1)
  1. CLOPIDOGREL [Suspect]
     Indication: TRANSIENT ISCHAEMIC ATTACK
     Dosage: daily dose: 75 Mg millgram(s) every Days
     Dates: start: 20120602, end: 20120604

REACTIONS (4)
  - Swelling face [Recovered/Resolved]
  - Swollen tongue [Recovered/Resolved]
  - Pruritus generalised [Recovered/Resolved]
  - Product substitution issue [Recovered/Resolved]
